FAERS Safety Report 4423082-X (Version None)
Quarter: 2004Q3

REPORT INFORMATION
  Report Type: 
  Country: None (occurrence: None)
  Receive Date: 20040806
  Receipt Date: 20040723
  Transmission Date: 20050211
  Serious: Yes (Hospitalization)
  Sender: FDA-Public Use
  Company Number: BE-JNJFOC-20040700826

PATIENT
  Age: 38 Year
  Sex: Female
  Weight: 52 kg

DRUGS (5)
  1. REMICADE [Suspect]
     Indication: RHEUMATOID ARTHRITIS
     Dosage: 3 MG/KG INTRAVENOUS
     Route: 042
     Dates: start: 20021031, end: 20040601
  2. MEDROL [Concomitant]
  3. CALCIUM (CALCIUM) [Concomitant]
  4. METHOTREXATE [Concomitant]
  5. FOLIC ACID [Concomitant]

REACTIONS (1)
  - PULMONARY TUBERCULOSIS [None]
